FAERS Safety Report 19096566 (Version 5)
Quarter: 2022Q2

REPORT INFORMATION
  Report Type: Spontaneous
  Country: US (occurrence: US)
  Receive Date: 20210406
  Receipt Date: 20220524
  Transmission Date: 20220721
  Serious: No
  Sender: FDA-Public Use
  Company Number: US-PFIZER INC-2021331533

PATIENT
  Age: 27 Year
  Sex: Female
  Weight: 67 kg

DRUGS (1)
  1. EPINEPHRINE [Suspect]
     Active Substance: EPINEPHRINE
     Dosage: 2 SHOTS

REACTIONS (2)
  - Drug hypersensitivity [Unknown]
  - Erythema [Unknown]
